FAERS Safety Report 18655788 (Version 1)
Quarter: 2020Q4

REPORT INFORMATION
  Report Type: Spontaneous
  Country: ES (occurrence: ES)
  Receive Date: 20201223
  Receipt Date: 20201223
  Transmission Date: 20210114
  Serious: Yes (Death)
  Sender: FDA-Public Use
  Company Number: ES-TEVA-2020-ES-1861252

PATIENT
  Age: 55 Year
  Sex: Female

DRUGS (2)
  1. SERTRALINA (2537A) [Interacting]
     Active Substance: SERTRALINE HYDROCHLORIDE
     Indication: DEPRESSION
     Route: 048
     Dates: start: 20200102, end: 20201025
  2. ALMOTRIPTAN (2819A) [Suspect]
     Active Substance: ALMOTRIPTAN
     Indication: MIGRAINE
     Route: 048
     Dates: start: 20200102, end: 20201025

REACTIONS (2)
  - Drug interaction [Unknown]
  - Serotonin syndrome [Fatal]

NARRATIVE: CASE EVENT DATE: 20201025
